FAERS Safety Report 4662814-2 (Version None)
Quarter: 2005Q2

REPORT INFORMATION
  Report Type: 
  Country: None (occurrence: None)
  Receive Date: 20050512
  Receipt Date: 20050502
  Transmission Date: 20051028
  Serious: No
  Sender: FDA-Public Use
  Company Number: HQWYE500603MAY05

PATIENT
  Age: 53 Year
  Sex: Female
  Weight: 59.02 kg

DRUGS (2)
  1. PREMPRO [Suspect]
     Indication: HOT FLUSH
     Dosage: 0.3MG/1.5MG ONCE DAILY, ORAL
     Route: 048
     Dates: start: 20000101, end: 20050301
  2. LEVOXYL [Concomitant]

REACTIONS (2)
  - THROAT TIGHTNESS [None]
  - URTICARIA [None]
